FAERS Safety Report 16131483 (Version 2)
Quarter: 2019Q2

REPORT INFORMATION
  Report Type: Report from Study
  Country: US (occurrence: US)
  Receive Date: 20190328
  Receipt Date: 20190402
  Transmission Date: 20190711
  Serious: Yes (Hospitalization)
  Sender: FDA-Public Use
  Company Number: US-ACTELION-A-US2019-188389

PATIENT
  Sex: Female
  Weight: 54.42 kg

DRUGS (1)
  1. UPTRAVI [Suspect]
     Active Substance: SELEXIPAG
     Indication: PULMONARY ARTERIAL HYPERTENSION
     Dosage: 200 MCG, BID
     Route: 048

REACTIONS (6)
  - Syncope [Unknown]
  - Decreased appetite [Unknown]
  - Hypotension [Unknown]
  - Surgery [Unknown]
  - Diarrhoea [Unknown]
  - Headache [Unknown]
